FAERS Safety Report 17001574 (Version 2)
Quarter: 2019Q4

REPORT INFORMATION
  Report Type: Report from Study
  Country: KR (occurrence: KR)
  Receive Date: 20191106
  Receipt Date: 20191108
  Transmission Date: 20200122
  Serious: Yes (Death)
  Sender: FDA-Public Use
  Company Number: KR-PFIZER INC-2019472985

PATIENT

DRUGS (1)
  1. CAMPTO [Suspect]
     Active Substance: IRINOTECAN
     Indication: GASTRIC CANCER
     Dosage: 150 MG/M2, CYCLIC(DAYS 1 AND 15, EVERY 4 WEEKS) (MIXED WITH 100-250 ML OF 5% DEXTROSE WATER)
     Route: 042

REACTIONS (1)
  - Sepsis [Fatal]
